FAERS Safety Report 10006435 (Version 1)
Quarter: 2014Q1

REPORT INFORMATION
  Report Type: Report from Study
  Country: US (occurrence: US)
  Receive Date: 20140313
  Receipt Date: 20140313
  Transmission Date: 20141002
  Serious: Yes (Hospitalization)
  Sender: FDA-Public Use
  Company Number: US-B.I. PHARMACEUTICALS,INC./RIDGEFIELD-2014-BI-10079BI

PATIENT
  Age: 56 Year
  Sex: Male
  Weight: 92.1 kg

DRUGS (5)
  1. DABIGATRAN [Suspect]
     Indication: ATRIAL FIBRILLATION
     Route: 048
     Dates: end: 20120327
  2. PLAVIX [Concomitant]
     Dosage: 75 MG
     Route: 048
  3. CARVEDILOL [Concomitant]
     Dosage: 25 MG
     Route: 048
  4. PRAVASTATIN [Concomitant]
     Dosage: 40 MG
     Route: 048
  5. SOTALOL [Concomitant]
     Dosage: 160 MG
     Route: 048

REACTIONS (1)
  - Upper gastrointestinal haemorrhage [Unknown]
